FAERS Safety Report 9257727 (Version 2)
Quarter: 2013Q2

REPORT INFORMATION
  Report Type: Spontaneous
  Country: US (occurrence: US)
  Receive Date: 20130426
  Receipt Date: 20130510
  Transmission Date: 20140414
  Serious: Yes (Hospitalization, Other)
  Sender: FDA-Public Use
  Company Number: US-PFIZER INC-2013107343

PATIENT
  Age: 69 Year
  Sex: Female
  Weight: 83.9 kg

DRUGS (9)
  1. LIPITOR [Suspect]
     Indication: BLOOD CHOLESTEROL INCREASED
     Dosage: 40 MG, 1X/DAY
     Dates: start: 1998
  2. LIPITOR [Suspect]
     Dosage: 80 MG, 1X/DAY
  3. LIPITOR [Suspect]
     Dosage: UNK, 1X/DAY
  4. ASPIRIN [Suspect]
     Indication: CEREBROVASCULAR ACCIDENT
     Dosage: 81 MG, 1X/DAY
     Route: 048
  5. VITAMIN D3 [Suspect]
     Dosage: 1000 IU, 1X/DAY
  6. MIRALAX [Suspect]
     Dosage: UNK
  7. PERCOCET [Suspect]
     Indication: SCIATICA
     Dosage: 10 MG, AS NEEDED
     Dates: start: 2011
  8. TOPAMAX [Suspect]
     Indication: SCIATICA
     Dosage: 100 MG, 2X/DAY
  9. POLYETHYLENE GLYCOL 3350 [Concomitant]
     Dosage: UNK

REACTIONS (6)
  - Gastrointestinal obstruction [Unknown]
  - Fluid imbalance [Unknown]
  - White blood cell count increased [Unknown]
  - Haemoglobin increased [Unknown]
  - Haematocrit increased [Unknown]
  - Vomiting [Unknown]
